FAERS Safety Report 10067305 (Version 2)
Quarter: 2014Q2

REPORT INFORMATION
  Report Type: Spontaneous
  Country: GB (occurrence: GB)
  Receive Date: 20140409
  Receipt Date: 20140428
  Transmission Date: 20141212
  Serious: Yes (Death, Other)
  Sender: FDA-Public Use
  Company Number: GB-ACCORD-022849

PATIENT
  Age: 65 Year
  Sex: Female

DRUGS (12)
  1. METHOTREXATE [Suspect]
     Indication: PRODUCT USED FOR UNKNOWN INDICATION
  2. WARFARIN [Suspect]
     Indication: PRODUCT USED FOR UNKNOWN INDICATION
  3. IMMUNOGLOBULIN [Concomitant]
     Route: 058
  4. QUININE [Concomitant]
  5. HYDROXYCHLOROQUINE [Suspect]
     Indication: PRODUCT USED FOR UNKNOWN INDICATION
  6. SIMVASTATIN [Suspect]
     Indication: BLOOD PRESSURE
  7. IODINE [Concomitant]
  8. ABATACEPT [Suspect]
     Indication: RHEUMATOID ARTHRITIS
     Dosage: 2 INFUSIONS.
     Route: 042
     Dates: start: 201307
  9. ALENDRONIC ACID [Concomitant]
  10. FOLIC ACID [Suspect]
     Indication: PRODUCT USED FOR UNKNOWN INDICATION
  11. CALCICHEW D3 [Concomitant]
     Dosage: FORTE 2 DAILY.
  12. PREDNISOLONE [Suspect]
     Indication: RHEUMATOID ARTHRITIS

REACTIONS (5)
  - Wound [Fatal]
  - Vascular injury [Fatal]
  - General physical health deterioration [Fatal]
  - Deep vein thrombosis [Fatal]
  - Fall [Unknown]
